FAERS Safety Report 9621327 (Version 1)
Quarter: 2013Q4

REPORT INFORMATION
  Report Type: Spontaneous
  Country: US (occurrence: None)
  Receive Date: 20131011
  Receipt Date: 20131011
  Transmission Date: 20140711
  Serious: Yes (Hospitalization)
  Sender: FDA-Public Use
  Company Number: None

PATIENT
  Age: 18 Year
  Sex: Male
  Weight: 107.2 kg

DRUGS (1)
  1. SUTENT [Suspect]
     Indication: HYPERTENSION

REACTIONS (3)
  - Hyperglycaemia [None]
  - Blood pressure increased [None]
  - Drug dose omission [None]
